FAERS Safety Report 22273038 (Version 1)
Quarter: 2023Q2

REPORT INFORMATION
  Report Type: Spontaneous
  Country: FR (occurrence: FR)
  Receive Date: 20230502
  Receipt Date: 20230502
  Transmission Date: 20230721
  Serious: Yes (Life-Threatening)
  Sender: FDA-Public Use
  Company Number: FR-VALIDUS PHARMACEUTICALS LLC-FR-VDP-2023-016056

PATIENT

DRUGS (2)
  1. CEFOTAXIME SODIUM [Suspect]
     Active Substance: CEFOTAXIME SODIUM
     Indication: Lung disorder
     Dosage: 3 GRAM (1 G 3/J)
     Route: 042
     Dates: start: 20230321, end: 20230321
  2. SPIRAMYCIN [Suspect]
     Active Substance: SPIRAMYCIN
     Indication: Lung disorder
     Dosage: 9 MILLI-INTERNATIONAL UNIT (3 MIU 3 MG/D)
     Route: 042
     Dates: start: 20230321, end: 20230321

REACTIONS (3)
  - Oedema [Recovered/Resolved]
  - Dyspnoea [Recovered/Resolved]
  - Rash pruritic [Recovered/Resolved]

NARRATIVE: CASE EVENT DATE: 20230321
